FAERS Safety Report 8829990 (Version 1)
Quarter: 2012Q4

REPORT INFORMATION
  Report Type: 
  Country: BR (occurrence: BR)
  Receive Date: 20121008
  Receipt Date: 20121008
  Transmission Date: 20130627
  Serious: Yes (Other)
  Sender: FDA-Public Use
  Company Number: BR-PFIZER INC-2012247543

PATIENT
  Age: 74 Year
  Sex: Female
  Weight: 70 kg

DRUGS (1)
  1. LYRICA [Suspect]
     Indication: PAIN IN EXTREMITY
     Dosage: 150 mg (one capsule), 2x/day
     Route: 048
     Dates: start: 20120927, end: 20120928

REACTIONS (6)
  - Confusional state [Unknown]
  - Activities of daily living impaired [Unknown]
  - Intervertebral disc degeneration [Unknown]
  - Ankyloglossia acquired [Unknown]
  - Dizziness [Unknown]
  - Listless [Unknown]
